FAERS Safety Report 10273368 (Version 1)
Quarter: 2014Q3

REPORT INFORMATION
  Report Type: Spontaneous
  Country: US (occurrence: US)
  Receive Date: 20140702
  Receipt Date: 20140702
  Transmission Date: 20150326
  Serious: Yes (Other)
  Sender: FDA-Public Use
  Company Number: US-PFIZER INC-2014178710

PATIENT
  Age: 49 Year
  Sex: Female

DRUGS (4)
  1. NEURONTIN [Suspect]
     Active Substance: GABAPENTIN
     Indication: NEURALGIA
     Dosage: 300 MG, 3X/DAY
     Route: 048
  2. NEURONTIN [Suspect]
     Active Substance: GABAPENTIN
     Indication: BURNING SENSATION
  3. CELEBREX [Concomitant]
     Active Substance: CELECOXIB
     Indication: OSTEOARTHRITIS
     Dosage: 200 MG, 2X/DAY
  4. NEURONTIN [Suspect]
     Active Substance: GABAPENTIN
     Indication: FEELING ABNORMAL

REACTIONS (12)
  - Anxiety [Unknown]
  - Pain [Unknown]
  - Herpes zoster [Unknown]
  - Agitation [Unknown]
  - Spinal disorder [Unknown]
  - Muscle spasms [Unknown]
  - Migraine [Unknown]
  - Blood cholesterol increased [Unknown]
  - Bone neoplasm [Unknown]
  - Insomnia [Unknown]
  - Ophthalmic herpes zoster [Unknown]
  - Glucose tolerance impaired [Unknown]
